FAERS Safety Report 14084784 (Version 1)
Quarter: 2017Q4

REPORT INFORMATION
  Report Type: Spontaneous
  Country: US (occurrence: None)
  Receive Date: 20171013
  Receipt Date: 20171013
  Transmission Date: 20180321
  Serious: Yes (Life-Threatening, Disabling)
  Sender: FDA-Public Use
  Company Number: None

PATIENT
  Age: 53 Year
  Sex: Male
  Weight: 91.17 kg

DRUGS (1)
  1. INVEGA SUSTENNA [Suspect]
     Active Substance: PALIPERIDONE PALMITATE
     Dosage: INJECTION IN SHOULDER RIGHT AND LEFT SIDE

REACTIONS (11)
  - Discomfort [None]
  - Nervousness [None]
  - Tremor [None]
  - Aphasia [None]
  - Memory impairment [None]
  - Mental impairment [None]
  - Hypertension [None]
  - Malaise [None]
  - Injection site pain [None]
  - Pain [None]
  - Speech disorder [None]

NARRATIVE: CASE EVENT DATE: 20170123
